FAERS Safety Report 4427427-6 (Version None)
Quarter: 2004Q3

REPORT INFORMATION
  Report Type: 
  Country: None (occurrence: None)
  Receive Date: 20040812
  Receipt Date: 20040804
  Transmission Date: 20050211
  Serious: Yes (Hospitalization)
  Sender: FDA-Public Use
  Company Number: 2004-119172-NL

PATIENT
  Age: 81 Year
  Sex: Male
  Weight: 83.63 kg

DRUGS (9)
  1. REMERON [Suspect]
     Indication: DEPRESSION
     Dosage: 7.5 MG QD ORAL HS
     Route: 048
     Dates: start: 20040602, end: 20040701
  2. MIRTAZAPINE [Suspect]
     Indication: DEPRESSION
     Dosage: 15 MG QD ORAL
     Route: 048
     Dates: start: 20040701, end: 20040803
  3. ARICEPT [Concomitant]
  4. COREG [Concomitant]
  5. KCL TAB [Concomitant]
  6. FLOMAX [Concomitant]
  7. MILK OF MAGNESIA TAB [Concomitant]
  8. ASPIRIN [Concomitant]
  9. BISACODYL [Concomitant]

REACTIONS (3)
  - CONVULSION [None]
  - PYREXIA [None]
  - TESTICULAR SWELLING [None]
